FAERS Safety Report 4680722-8 (Version None)
Quarter: 2005Q2

REPORT INFORMATION
  Report Type: 
  Country: None (occurrence: None)
  Receive Date: 20050603
  Receipt Date: 20050530
  Transmission Date: 20051028
  Serious: Yes (Death)
  Sender: FDA-Public Use
  Company Number: 200511069DE

PATIENT
  Age: 63 Year
  Sex: Male
  Weight: 100 kg

DRUGS (4)
  1. TAXOTERE [Suspect]
     Indication: HYPOPHARYNGEAL CANCER
     Route: 042
     Dates: start: 20050309
  2. CARBOPLATIN [Concomitant]
     Indication: METASTASIS
     Dates: start: 20050101
  3. CEFOTIAM HYDROCHLORIDE [Concomitant]
     Dates: start: 20050301, end: 20050330
  4. AVELOX [Concomitant]
     Dates: start: 20050301, end: 20050330

REACTIONS (6)
  - BRONCHITIS [None]
  - HALLUCINATION [None]
  - LEUKOPENIA [None]
  - LOBAR PNEUMONIA [None]
  - PNEUMONIA [None]
  - RESPIRATORY FAILURE [None]
